FAERS Safety Report 5524869-2 (Version None)
Quarter: 2007Q4

REPORT INFORMATION
  Report Type: 
  Country: None (occurrence: None)
  Receive Date: 20071116
  Receipt Date: 20071102
  Transmission Date: 20080405
  Serious: Yes (Other)
  Sender: FDA-Public Use
  Company Number: 2007AL004779

PATIENT
  Sex: Male

DRUGS (5)
  1. METFORMIN HYDROCHLORIDE [Suspect]
     Indication: DIABETES MELLITUS
  2. ATENOLOL [Concomitant]
  3. ABACAVIR [Concomitant]
  4. VIRAMUNE [Concomitant]
  5. VIDEX [Concomitant]

REACTIONS (3)
  - GAIT DISTURBANCE [None]
  - OSTEONECROSIS [None]
  - PAIN [None]
